FAERS Safety Report 15579531 (Version 3)
Quarter: 2018Q4

REPORT INFORMATION
  Report Type: Spontaneous
  Country: GB (occurrence: GB)
  Receive Date: 20181102
  Receipt Date: 20181219
  Transmission Date: 20190205
  Serious: Yes (Hospitalization)
  Sender: FDA-Public Use
  Company Number: GB-MYLANLABS-2018M1082693

PATIENT
  Age: 80 Year
  Sex: Female

DRUGS (4)
  1. PRIADEL [Concomitant]
     Active Substance: LITHIUM
     Indication: BIPOLAR DISORDER
     Dosage: 400 MILLIGRAM, PM
  2. CLOZARIL [Suspect]
     Active Substance: CLOZAPINE
     Indication: BIPOLAR DISORDER
     Dosage: 50 MILLIGRAM, BID
     Route: 048
     Dates: start: 20181015
  3. PARACETAMOL [Concomitant]
     Active Substance: ACETAMINOPHEN
     Indication: PAIN
     Dosage: 1 GRAM, QID
  4. QUETIAPINE. [Concomitant]
     Active Substance: QUETIAPINE
     Indication: BIPOLAR DISORDER
     Dosage: 150 MILLIGRAM, BID
     Route: 048

REACTIONS (7)
  - Troponin increased [Recovered/Resolved]
  - Body temperature increased [Recovered/Resolved]
  - Anxiety [Recovered/Resolved]
  - Blood creatine phosphokinase increased [Recovered/Resolved]
  - Neutrophil count increased [Recovered/Resolved]
  - Product use in unapproved indication [Unknown]
  - Tachycardia [Recovered/Resolved]

NARRATIVE: CASE EVENT DATE: 201810
